FAERS Safety Report 7488382-8 (Version None)
Quarter: 2011Q2

REPORT INFORMATION
  Report Type: 
  Country: None (occurrence: None)
  Receive Date: 20110518
  Receipt Date: 20110513
  Transmission Date: 20111010
  Serious: Yes (Other)
  Sender: FDA-Public Use
  Company Number: CN-PFIZER INC-2011102642

PATIENT
  Sex: Male

DRUGS (1)
  1. GLUCOTROL [Suspect]
     Indication: BLOOD GLUCOSE ABNORMAL
     Dosage: 2 TABLETS
     Route: 048

REACTIONS (1)
  - DIABETES MELLITUS INADEQUATE CONTROL [None]
